FAERS Safety Report 14751053 (Version 1)
Quarter: 2018Q2

REPORT INFORMATION
  Report Type: Spontaneous
  Country: US (occurrence: US)
  Receive Date: 20180411
  Receipt Date: 20180411
  Transmission Date: 20180711
  Serious: Yes (Hospitalization)
  Sender: FDA-Public Use
  Company Number: None

PATIENT
  Age: 49 Year
  Sex: Female

DRUGS (1)
  1. KRATOM [Suspect]
     Active Substance: MITRAGYNINE\HERBALS
     Route: 048
     Dates: start: 201710, end: 201710

REACTIONS (11)
  - Vomiting [None]
  - Oedema peripheral [None]
  - Mouth ulceration [None]
  - Diarrhoea [None]
  - Nausea [None]
  - Abdominal pain [None]
  - Colitis ulcerative [None]
  - Physical product label issue [None]
  - Pyrexia [None]
  - Drug ineffective [None]
  - Diarrhoea haemorrhagic [None]

NARRATIVE: CASE EVENT DATE: 201712
